FAERS Safety Report 9304120 (Version 2)
Quarter: 2013Q3

REPORT INFORMATION
  Report Type: Spontaneous
  Country: US (occurrence: US)
  Receive Date: 20130522
  Receipt Date: 20130708
  Transmission Date: 20140515
  Serious: Yes (Other)
  Sender: FDA-Public Use
  Company Number: US-COVIDIEN/TYCO HEALTHCARE/MALLINCKRODT-T201301824

PATIENT
  Age: 27 Year
  Sex: Female

DRUGS (1)
  1. GABLOFEN [Suspect]
     Indication: MUSCLE SPASTICITY
     Dosage: 105 MCG/DAY
     Route: 037

REACTIONS (5)
  - Drug withdrawal syndrome [Not Recovered/Not Resolved]
  - Psychotic disorder [Unknown]
  - Muscle spasticity [Unknown]
  - Pruritus [Unknown]
  - Device failure [Unknown]
